FAERS Safety Report 26028816 (Version 1)
Quarter: 2025Q4

REPORT INFORMATION
  Report Type: Report from Study
  Country: EU (occurrence: EU)
  Receive Date: 20251112
  Receipt Date: 20251112
  Transmission Date: 20260118
  Serious: Yes (Hospitalization)
  Sender: BAXTER
  Company Number: EU-BAXTER-2025BAX023860

PATIENT
  Age: 66 Year
  Sex: Male

DRUGS (4)
  1. OLIMEL E [Suspect]
     Active Substance: AMINO ACIDS\DEXTROSE\ELECTROLYTES NOS\SOYBEAN OIL
     Indication: Parenteral nutrition
     Dosage: 1500 ML, CENTRAL VENOUS
     Route: 042
     Dates: start: 20251030, end: 20251106
  2. ELECTROLYTES NOS\MINERALS [Suspect]
     Active Substance: ELECTROLYTES NOS\MINERALS
     Indication: Parenteral nutrition
     Dosage: 10 ML, CENTRAL VENOUS
     Route: 042
     Dates: start: 20251030, end: 20251106
  3. UNSPECIFIED INGREDIENT [Suspect]
     Active Substance: UNSPECIFIED INGREDIENT
     Route: 065
  4. VITAMINS [Suspect]
     Active Substance: VITAMINS
     Indication: Parenteral nutrition
     Dosage: 8 ML, CENTRAL VENOUS
     Route: 042
     Dates: start: 20251030, end: 20251106

REACTIONS (1)
  - General physical health deterioration [Unknown]

NARRATIVE: CASE EVENT DATE: 20251106
